FAERS Safety Report 4621652-7 (Version None)
Quarter: 2005Q1

REPORT INFORMATION
  Report Type: 
  Country: None (occurrence: None)
  Receive Date: 20050328
  Receipt Date: 20030410
  Transmission Date: 20050727
  Serious: No
  Sender: FDA-Public Use
  Company Number: 5369

PATIENT
  Age: 50 Year
  Sex: Female

DRUGS (6)
  1. PAMIDRONATE DISODIUM [Suspect]
     Indication: MULTIPLE MYELOMA
     Dosage: 90 MG MONTHLY IV
     Route: 042
     Dates: start: 19960701, end: 19980101
  2. PAMIDRONATE DISODIUM [Suspect]
     Indication: MULTIPLE MYELOMA
     Dosage: 180 MG MONTHLY IV
     Route: 042
     Dates: start: 19991001
  3. INTERFERON-ALPHA [Concomitant]
  4. VINCRISTINE [Concomitant]
  5. DOXORUBICIN HCL [Concomitant]
  6. DEXAMETHASONE [Concomitant]

REACTIONS (7)
  - BLOOD ALBUMIN DECREASED [None]
  - BLOOD CREATININE INCREASED [None]
  - GLOMERULONEPHRITIS FOCAL [None]
  - HAEMODIALYSIS [None]
  - NEPHROTIC SYNDROME [None]
  - OEDEMA PERIPHERAL [None]
  - PROTEIN URINE PRESENT [None]
